FAERS Safety Report 13656617 (Version 2)
Quarter: 2017Q3

REPORT INFORMATION
  Report Type: Report from Study
  Country: DE (occurrence: DE)
  Receive Date: 20170615
  Receipt Date: 20170808
  Transmission Date: 20171127
  Serious: Yes (Death)
  Sender: FDA-Public Use
  Company Number: PHHY2017DE087005

PATIENT
  Sex: Female
  Weight: 50 kg

DRUGS (1)
  1. VOTRIENT [Suspect]
     Active Substance: PAZOPANIB HYDROCHLORIDE
     Indication: RENAL CELL CARCINOMA
     Dosage: 200 MG, QD
     Route: 065
     Dates: start: 20170106, end: 2017

REACTIONS (4)
  - Renal cell carcinoma [Fatal]
  - Respiratory failure [Fatal]
  - Metastases to pleura [Fatal]
  - Pleural effusion [Fatal]

NARRATIVE: CASE EVENT DATE: 20170607
